FAERS Safety Report 11031944 (Version 2)
Quarter: 2015Q2

REPORT INFORMATION
  Report Type: Spontaneous
  Country: DE (occurrence: DE)
  Receive Date: 20150415
  Receipt Date: 20150429
  Transmission Date: 20150821
  Serious: Yes (Hospitalization)
  Sender: FDA-Public Use
  Company Number: DE-ASTRAZENECA-2015SE14226

PATIENT
  Age: 15686 Day
  Sex: Female
  Weight: 61 kg

DRUGS (3)
  1. OLAPARIB [Suspect]
     Active Substance: OLAPARIB
     Indication: BREAST CANCER METASTATIC
     Route: 048
     Dates: start: 201408
  2. OLAPARIB [Suspect]
     Active Substance: OLAPARIB
     Indication: OVARIAN CANCER
     Route: 048
     Dates: start: 201408
  3. MISTLETOE [Concomitant]

REACTIONS (6)
  - Hyperthermia [Unknown]
  - Pancytopenia [Unknown]
  - Nausea [Recovered/Resolved]
  - Cytomegalovirus infection [Recovering/Resolving]
  - Dyspepsia [Recovered/Resolved]
  - Anaemia [Recovered/Resolved]

NARRATIVE: CASE EVENT DATE: 20140919
